FAERS Safety Report 6115730-3 (Version None)
Quarter: 2009Q1

REPORT INFORMATION
  Report Type: 
  Country: None (occurrence: None)
  Receive Date: 20090313
  Receipt Date: 20090303
  Transmission Date: 20090719
  Serious: Yes (Other)
  Sender: FDA-Public Use
  Company Number: GB-JNJCH-2009006920

PATIENT
  Age: 32 Year
  Sex: Male

DRUGS (2)
  1. CETIRIZINE HYDROCHLORIDE [Suspect]
     Indication: SEASONAL ALLERGY
     Dosage: TEXT:UNKNOWN
     Route: 065
  2. CETIRIZINE HYDROCHLORIDE [Suspect]
     Indication: URTICARIA

REACTIONS (1)
  - CARDIOMYOPATHY [None]
